FAERS Safety Report 12248648 (Version 1)
Quarter: 2016Q2

REPORT INFORMATION
  Report Type: Spontaneous
  Country: US (occurrence: US)
  Receive Date: 20160408
  Receipt Date: 20160408
  Transmission Date: 20160815
  Serious: No
  Sender: FDA-Public Use
  Company Number: US-PFIZER INC-2016168006

PATIENT
  Sex: Male

DRUGS (2)
  1. BUTRANS [Concomitant]
     Active Substance: BUPRENORPHINE
     Dosage: UNK
  2. SONATA [Suspect]
     Active Substance: ZALEPLON
     Dosage: UNK

REACTIONS (1)
  - Drug effect incomplete [Unknown]
